FAERS Safety Report 25969345 (Version 1)
Quarter: 2025Q4

REPORT INFORMATION
  Report Type: Spontaneous
  Country: US (occurrence: US)
  Receive Date: 20251028
  Receipt Date: 20251028
  Transmission Date: 20260118
  Serious: No
  Sender: INSUD PHARMA
  Company Number: US-INSUD PHARMA-2510US08586

PATIENT

DRUGS (1)
  1. SLYND [Suspect]
     Active Substance: DROSPIRENONE
     Indication: Contraception
     Dosage: UNK UNK, QD
     Route: 048
     Dates: start: 2025, end: 20251011

REACTIONS (3)
  - Urinary tract infection [Unknown]
  - Vulvovaginal dryness [Unknown]
  - Withdrawal bleed [Not Recovered/Not Resolved]

NARRATIVE: CASE EVENT DATE: 20251001
